FAERS Safety Report 4473664-4 (Version None)
Quarter: 2004Q3

REPORT INFORMATION
  Report Type: 
  Country: None (occurrence: None)
  Receive Date: 20040910
  Receipt Date: 20030502
  Transmission Date: 20050211
  Serious: No
  Sender: FDA-Public Use
  Company Number: 2004209068US

PATIENT
  Age: 80 Year
  Sex: Female
  Weight: 59 kg

DRUGS (4)
  1. BEXTRA [Suspect]
     Indication: ARTHRITIS
     Dosage: UNK, QD, UNK
     Route: 065
     Dates: start: 20030502, end: 20030507
  2. ANACIN [Concomitant]
  3. ZYRTEC [Concomitant]
  4. CLARITIN [Concomitant]

REACTIONS (1)
  - RECTAL HAEMORRHAGE [None]
